FAERS Safety Report 25087466 (Version 1)
Quarter: 2025Q1

REPORT INFORMATION
  Report Type: Spontaneous
  Country: US (occurrence: US)
  Receive Date: 20250318
  Receipt Date: 20250318
  Transmission Date: 20250408
  Serious: Yes (Other)
  Sender: NOVO NORDISK
  Company Number: US-NOVOPROD-1387425

PATIENT
  Age: 76 Year
  Sex: Male

DRUGS (1)
  1. OZEMPIC [Suspect]
     Active Substance: SEMAGLUTIDE
     Indication: Type 2 diabetes mellitus
     Dosage: 2 MG, QW
     Route: 058
     Dates: start: 2022

REACTIONS (3)
  - Cyst removal [Not Recovered/Not Resolved]
  - Skin squamous cell carcinoma recurrent [Not Recovered/Not Resolved]
  - Allergy to surgical sutures [Not Recovered/Not Resolved]

NARRATIVE: CASE EVENT DATE: 20250211
